FAERS Safety Report 25368360 (Version 3)
Quarter: 2025Q3

REPORT INFORMATION
  Report Type: Spontaneous
  Country: US (occurrence: US)
  Receive Date: 20250528
  Receipt Date: 20250717
  Transmission Date: 20251020
  Serious: Yes (Life-Threatening, Hospitalization, Disabling, Other)
  Sender: BRISTOL-MYERS SQUIBB COMPANY
  Company Number: US-BRISTOL-MYERS SQUIBB COMPANY-2025-076556

PATIENT
  Age: 94 Year
  Sex: Female
  Weight: 54.9 kg

DRUGS (37)
  1. ELIQUIS [Suspect]
     Active Substance: APIXABAN
     Indication: Carotid artery stenosis
     Dosage: 60 TABLET
     Route: 048
     Dates: start: 20250219, end: 20250429
  2. ELIQUIS [Suspect]
     Active Substance: APIXABAN
     Indication: Aortic stenosis
     Dosage: 60 TABLET
     Route: 048
     Dates: start: 20250527
  3. ELIQUIS [Suspect]
     Active Substance: APIXABAN
     Indication: Peripheral arterial occlusive disease
  4. VOLTAREN [Suspect]
     Active Substance: DICLOFENAC SODIUM
     Indication: Arthritis
     Dosage: APPLY TOPICALLY DAILY. USES ON KNEE
     Route: 061
  5. VOLTAREN [Suspect]
     Active Substance: DICLOFENAC SODIUM
     Indication: Arthralgia
     Dosage: APPLY TOPICALLY DAILY. USES ON KNEE
     Route: 061
  6. ACETAMINOPHEN [Concomitant]
     Active Substance: ACETAMINOPHEN
     Indication: Pain
     Dosage: AS NEEDED
     Route: 048
  7. VITAMIN C [Concomitant]
     Active Substance: ASCORBIC ACID
     Indication: Supplementation therapy
     Dosage: IN THE AFTERNOON
     Route: 048
  8. VITAMIN B COMPLEX [Concomitant]
     Active Substance: CYANOCOBALAMIN\DEXPANTHENOL\NIACINAMIDE\PYRIDOXINE HYDROCHLORIDE\RIBOFLAVIN 5^-PHOSPHATE SODIUM\THIA
     Indication: Supplementation therapy
     Route: 048
  9. BIOTIN [Concomitant]
     Active Substance: BIOTIN
     Indication: Supplementation therapy
     Route: 048
  10. CALTRATE [Concomitant]
     Active Substance: CALCIUM CARBONATE
     Indication: Compression fracture
     Route: 048
  11. CALTRATE [Concomitant]
     Active Substance: CALCIUM CARBONATE
     Indication: Kyphosis
  12. VITAMIN D3 [Concomitant]
     Active Substance: CHOLECALCIFEROL
     Indication: Compression fracture
     Dosage: 25 MCG (1,000 UNIT) TABLET
     Route: 048
  13. VITAMIN D3 [Concomitant]
     Active Substance: CHOLECALCIFEROL
     Indication: Kyphosis
  14. RESTASIS [Concomitant]
     Active Substance: CYCLOSPORINE
     Indication: Dry eye
     Route: 047
     Dates: start: 20200617
  15. PLENDIL [Concomitant]
     Active Substance: FELODIPINE
     Indication: Peripheral arterial occlusive disease
     Dosage: 90 TABLET
     Route: 048
     Dates: start: 20250122
  16. FERROUS SULFATE [Concomitant]
     Active Substance: FERROUS SULFATE
     Indication: Anaemia
     Dosage: 65 MG IRON
     Route: 048
  17. NEURONTIN [Concomitant]
     Active Substance: GABAPENTIN
     Indication: Lumbar spinal stenosis
     Dosage: 90 CAPSULE, AT BEDTIME
     Route: 048
     Dates: start: 20250107
  18. NEURONTIN [Concomitant]
     Active Substance: GABAPENTIN
     Indication: Neck pain
     Dosage: 180 CAPSULE
     Route: 048
     Dates: start: 20250106
  19. NEURONTIN [Concomitant]
     Active Substance: GABAPENTIN
     Indication: Back pain
  20. NEURONTIN [Concomitant]
     Active Substance: GABAPENTIN
     Indication: Spinal claudication
  21. LIDODERM [Concomitant]
     Active Substance: LIDOCAINE
     Indication: Pain
     Route: 048
     Dates: start: 20250422
  22. LIDODERM [Concomitant]
     Active Substance: LIDOCAINE
     Dosage: PATCH
     Route: 062
  23. LIDODERM [Concomitant]
     Active Substance: LIDOCAINE
     Dosage: REMOVE PATCH AFTER 12 HOURS
     Route: 062
  24. HYDROCHLOROTHIAZIDE [Concomitant]
     Active Substance: HYDROCHLOROTHIAZIDE
     Indication: Hypertension
     Dosage: 90 CAPSULE
     Route: 048
     Dates: start: 20240703
  25. MAGNESIUM OXIDE [Concomitant]
     Active Substance: MAGNESIUM OXIDE
     Indication: Supplementation therapy
     Route: 048
  26. SYSTANE (HYPROMELLOSE 2910 (4000 MPA.S)) [Concomitant]
     Active Substance: HYPROMELLOSE 2910 (4000 MPA.S)
     Indication: Dry eye
     Dosage: PEG 400-PROPYLENE GLYCOL, 0.4-0.3 % DROP IN BOTH EYES
     Route: 047
  27. SYSTANE (HYPROMELLOSE 2910 (4000 MPA.S)) [Concomitant]
     Active Substance: HYPROMELLOSE 2910 (4000 MPA.S)
     Dosage: 17 G, ORAL, DAILY PRN, DISSOLVE IN 4-8 OZ OF LIQUID.
     Route: 048
  28. ZOCOR [Concomitant]
     Active Substance: SIMVASTATIN
     Indication: Blood cholesterol increased
     Dosage: BEDTIME
     Route: 048
  29. ZOCOR [Concomitant]
     Active Substance: SIMVASTATIN
     Dosage: EVERY EVENING
  30. SODIUM CHLORIDE [Concomitant]
     Active Substance: SODIUM CHLORIDE
     Indication: Product used for unknown indication
     Dates: start: 20190821
  31. MINERALS\VITAMINS [Concomitant]
     Active Substance: MINERALS\VITAMINS
     Indication: Eye disorder prophylaxis
     Dosage: 90 TABLET
     Route: 048
  32. ZINC ACETATE [Concomitant]
     Active Substance: ZINC ACETATE
     Indication: Supplementation therapy
     Route: 048
  33. ZINC ACETATE [Concomitant]
     Active Substance: ZINC ACETATE
     Dosage: 325 (65 FE) MG TABS
     Route: 048
  34. SUPER B COMPLEX [BIOTIN;CHOLINE;CYANOCOBALAMIN;FOLIC ACID;INOSITOL;NIC [Concomitant]
     Indication: Supplementation therapy
     Route: 048
  35. SENNA AND DOCUSATE SODIUM [Concomitant]
     Active Substance: DOCUSATE SODIUM\SENNOSIDES
     Indication: Constipation
     Dosage: 8.6 - 50 MG, PRN
     Route: 048
  36. PRILOSEC [Concomitant]
     Active Substance: OMEPRAZOLE MAGNESIUM
     Indication: Gastrooesophageal reflux disease
  37. PRILOSEC [Concomitant]
     Active Substance: OMEPRAZOLE MAGNESIUM
     Indication: Dyspepsia

REACTIONS (8)
  - COVID-19 [Recovered/Resolved]
  - Enterocolitis viral [Recovered/Resolved]
  - Enterocolitis haemorrhagic [Recovered/Resolved]
  - Lower gastrointestinal haemorrhage [Recovered/Resolved]
  - Peripheral vascular disorder [Unknown]
  - Mental status changes [Unknown]
  - Cognitive disorder [Unknown]
  - Off label use [Unknown]

NARRATIVE: CASE EVENT DATE: 20250306
